FAERS Safety Report 5130551-6 (Version None)
Quarter: 2006Q4

REPORT INFORMATION
  Report Type: 
  Country: None (occurrence: None)
  Receive Date: 20061017
  Receipt Date: 20061017
  Transmission Date: 20070319
  Serious: Yes (Other)
  Sender: FDA-Public Use
  Company Number: None

PATIENT
  Sex: Male
  Weight: 88.905 kg

DRUGS (1)
  1. CLOPIDOGREL [Suspect]
     Indication: CATHETER PLACEMENT
     Dosage: 75MG QD PO
     Route: 048
     Dates: start: 20061003, end: 20061005

REACTIONS (3)
  - CONJUNCTIVAL HAEMORRHAGE [None]
  - GINGIVAL BLEEDING [None]
  - STOMACH DISCOMFORT [None]
